FAERS Safety Report 20476810 (Version 1)
Quarter: 2022Q1

REPORT INFORMATION
  Report Type: Spontaneous
  Country: US (occurrence: US)
  Receive Date: 20220215
  Receipt Date: 20220215
  Transmission Date: 20220423
  Serious: No
  Sender: FDA-Public Use
  Company Number: US-SA-SAC20220210000119

PATIENT
  Age: 63 Year
  Sex: Female

DRUGS (16)
  1. DUPIXENT [Suspect]
     Active Substance: DUPILUMAB
     Indication: Asthma
     Dosage: 300 MG/2ML/QOW
     Route: 058
     Dates: start: 20210410
  2. CLOBETASOL [Concomitant]
     Active Substance: CLOBETASOL
  3. FIORICET [Concomitant]
     Active Substance: ACETAMINOPHEN\BUTALBITAL\CAFFEINE
  4. FISH OIL [Concomitant]
     Active Substance: FISH OIL
  5. OTEZLA [Concomitant]
     Active Substance: APREMILAST
  6. PANTOPRAZOLE [Concomitant]
     Active Substance: PANTOPRAZOLE
  7. REPATHA [Concomitant]
     Active Substance: EVOLOCUMAB
  8. SPIRIVA [Concomitant]
     Active Substance: TIOTROPIUM BROMIDE MONOHYDRATE
  9. SYMBICORT [Concomitant]
     Active Substance: BUDESONIDE\FORMOTEROL FUMARATE DIHYDRATE
  10. SYNTHROID [Concomitant]
     Active Substance: LEVOTHYROXINE SODIUM
  11. VENLAFAXINE [Concomitant]
     Active Substance: VENLAFAXINE HYDROCHLORIDE
  12. VENTOLIN HFA [Concomitant]
     Active Substance: ALBUTEROL SULFATE
  13. ASPIRIN [Concomitant]
     Active Substance: ASPIRIN
  14. GLIPIZIDE AND METFORMIN HCL [Concomitant]
     Active Substance: GLIPIZIDE\METFORMIN HYDROCHLORIDE
  15. METOPROLOL TARTRATE [Concomitant]
     Active Substance: METOPROLOL TARTRATE
  16. REPATHA [Concomitant]
     Active Substance: EVOLOCUMAB

REACTIONS (3)
  - Infection [Not Recovered/Not Resolved]
  - COVID-19 [Not Recovered/Not Resolved]
  - Product use issue [Unknown]

NARRATIVE: CASE EVENT DATE: 20210410
